FAERS Safety Report 17680473 (Version 1)
Quarter: 2020Q2

REPORT INFORMATION
  Report Type: Spontaneous
  Country: US (occurrence: US)
  Receive Date: 20200417
  Receipt Date: 20200417
  Transmission Date: 20200714
  Serious: Yes (Death, Life-Threatening, Hospitalization, Other)
  Sender: FDA-Public Use
  Company Number: US-ALLERGAN-2015853US

PATIENT
  Sex: Female

DRUGS (2)
  1. ESTROGEN [Suspect]
     Active Substance: ESTROGENS
     Indication: OESTROGEN REPLACEMENT THERAPY
     Dosage: HIGH DOSE ESTROGEN REPLACEMENT THERAPY
     Route: 065
  2. ESCITALOPRAM OXALATE - BP [Suspect]
     Active Substance: ESCITALOPRAM OXALATE
     Indication: DEPRESSION
     Route: 065

REACTIONS (1)
  - Haemorrhage intracranial [Fatal]
